FAERS Safety Report 9922692 (Version 1)
Quarter: 2014Q1

REPORT INFORMATION
  Report Type: Spontaneous
  Country: US (occurrence: US)
  Receive Date: 20140225
  Receipt Date: 20140225
  Transmission Date: 20141002
  Serious: No
  Sender: FDA-Public Use
  Company Number: US-MYLANLABS-2013S1008610

PATIENT
  Sex: Female

DRUGS (2)
  1. METOPROLOL TARTRATE TABLETS, USP [Suspect]
     Indication: ATRIAL FIBRILLATION
     Route: 048
     Dates: start: 2010
  2. METOPROLOL TARTRATE TABLETS, USP [Suspect]
     Indication: OFF LABEL USE
     Route: 048
     Dates: start: 2010

REACTIONS (1)
  - Reaction to drug excipients [Not Recovered/Not Resolved]
